FAERS Safety Report 6174341-4 (Version None)
Quarter: 2009Q2

REPORT INFORMATION
  Report Type: 
  Country: None (occurrence: None)
  Receive Date: 20090430
  Receipt Date: 20080925
  Transmission Date: 20091009
  Serious: No
  Sender: FDA-Public Use
  Company Number: US-ASTRAZENECA-2008UW10347

PATIENT
  Age: 59 Year
  Sex: Female
  Weight: 74.8 kg

DRUGS (10)
  1. NEXIUM [Suspect]
     Indication: GASTROOESOPHAGEAL REFLUX DISEASE
     Route: 048
  2. NEXIUM [Suspect]
     Indication: DYSPEPSIA
     Route: 048
  3. NEXIUM [Suspect]
     Indication: ABDOMINAL PAIN UPPER
     Route: 048
  4. CLINDEX [Concomitant]
  5. ENALAPRIL [Concomitant]
  6. TOPROL-XL [Concomitant]
     Route: 048
  7. POTASSIUM CHLORIDE [Concomitant]
  8. ANTISPASMODIC [Concomitant]
  9. ELIXIR [Concomitant]
  10. METFORMIN HCL [Concomitant]

REACTIONS (8)
  - CHEST PAIN [None]
  - DRUG EFFECT DECREASED [None]
  - DRUG INEFFECTIVE [None]
  - HEADACHE [None]
  - MALAISE [None]
  - OESOPHAGEAL PAIN [None]
  - OESOPHAGEAL SPASM [None]
  - THROAT IRRITATION [None]
